FAERS Safety Report 5556023-2 (Version None)
Quarter: 2007Q4

REPORT INFORMATION
  Report Type: 
  Country: None (occurrence: None)
  Receive Date: 20071213
  Receipt Date: 20071203
  Transmission Date: 20080405
  Serious: Yes (Other)
  Sender: FDA-Public Use
  Company Number: US-PFIZER INC-2007102982

PATIENT
  Sex: Female
  Weight: 79.4 kg

DRUGS (4)
  1. CHANTIX [Suspect]
     Indication: EX-SMOKER
  2. ALPRAZOLAM [Suspect]
     Indication: ANXIETY
     Dosage: DAILY DOSE:1MG
  3. LORTAB [Concomitant]
  4. ZOMIG [Concomitant]

REACTIONS (9)
  - APATHY [None]
  - DEPRESSED MOOD [None]
  - DRUG WITHDRAWAL SYNDROME [None]
  - FEELING ABNORMAL [None]
  - HEADACHE [None]
  - INSOMNIA [None]
  - IRRITABILITY [None]
  - PNEUMONIA [None]
  - SELF-INJURIOUS IDEATION [None]
